FAERS Safety Report 19344617 (Version 1)
Quarter: 2021Q2

REPORT INFORMATION
  Report Type: Spontaneous
  Country: US (occurrence: US)
  Receive Date: 20210530
  Receipt Date: 20210530
  Transmission Date: 20210717
  Serious: Yes (Other)
  Sender: FDA-Public Use
  Company Number: US-PURDUE-USA-2020-0195848

PATIENT
  Sex: Male

DRUGS (6)
  1. MORPHINE SULFATE EXTENDED?RELEASE TABLETS (RHODES 74?769, 74?862) [Suspect]
     Active Substance: MORPHINE SULFATE
     Indication: SPINAL STENOSIS
     Dosage: 15 MG, UNK
     Route: 048
  2. OXYCONTIN [Suspect]
     Active Substance: OXYCODONE HYDROCHLORIDE
     Indication: SPINAL STENOSIS
     Dosage: UNKNOWN
     Route: 048
  3. MS CONTIN [Suspect]
     Active Substance: MORPHINE SULFATE
     Dosage: 120 MG, DAILY
     Route: 048
  4. TRAMADOL. [Suspect]
     Active Substance: TRAMADOL
     Indication: SPINAL STENOSIS
     Dosage: UNKNOWN
     Route: 048
  5. MS CONTIN [Suspect]
     Active Substance: MORPHINE SULFATE
     Indication: SPINAL STENOSIS
     Dosage: UNKNOWN
     Route: 048
     Dates: start: 2009
  6. HYDROCODONE BITARTRATE AND ACETAMINOPHEN [Suspect]
     Active Substance: ACETAMINOPHEN\HYDROCODONE BITARTRATE
     Indication: SPINAL STENOSIS
     Dosage: UNKNOWN
     Route: 048

REACTIONS (15)
  - Abdominal pain [Unknown]
  - Chills [Unknown]
  - Pain [Unknown]
  - Drug withdrawal syndrome [Unknown]
  - Depression [Unknown]
  - Anxiety [Unknown]
  - Anger [Unknown]
  - Drug dependence [Unknown]
  - Overdose [Unknown]
  - Constipation [Unknown]
  - Fatigue [Unknown]
  - Feeling hot [Unknown]
  - Asthenia [Unknown]
  - Tremor [Unknown]
  - Diarrhoea [Unknown]
